FAERS Safety Report 25012949 (Version 1)
Quarter: 2025Q1

REPORT INFORMATION
  Report Type: Spontaneous
  Country: US (occurrence: None)
  Receive Date: 20250225
  Receipt Date: 20250225
  Transmission Date: 20250409
  Serious: No
  Sender: FDA-CTU
  Company Number: None

PATIENT
  Age: 38 Year
  Sex: Male
  Weight: 83.7 kg

DRUGS (1)
  1. COBENFY [Suspect]
     Active Substance: TROSPIUM CHLORIDE\XANOMELINE
     Indication: Schizophrenia
     Dosage: FREQUENCY : TWICE A DAY;?
     Route: 048
     Dates: start: 20250210, end: 20250220

REACTIONS (3)
  - Vision blurred [None]
  - Reading disorder [None]
  - Therapy cessation [None]

NARRATIVE: CASE EVENT DATE: 20250220
